FAERS Safety Report 7383789-1 (Version None)
Quarter: 2011Q1

REPORT INFORMATION
  Report Type: 
  Country: None (occurrence: None)
  Receive Date: 20110330
  Receipt Date: 20110324
  Transmission Date: 20110831
  Serious: Yes (Hospitalization)
  Sender: FDA-Public Use
  Company Number: TW-PFIZER INC-2011066201

PATIENT
  Age: 66 Year
  Sex: Male

DRUGS (1)
  1. SUTENT [Suspect]
     Indication: GASTROINTESTINAL STROMAL TUMOUR
     Dosage: 3 CAPSULES, DAILY
     Route: 048
     Dates: start: 20110101

REACTIONS (3)
  - BLISTER [None]
  - SKIN ULCER [None]
  - MOUTH ULCERATION [None]
